FAERS Safety Report 7359263-5 (Version None)
Quarter: 2011Q1

REPORT INFORMATION
  Report Type: 
  Country: None (occurrence: None)
  Receive Date: 20110317
  Receipt Date: 20110307
  Transmission Date: 20110831
  Serious: Yes (Hospitalization)
  Sender: FDA-Public Use
  Company Number: PHHO2011US02497

PATIENT
  Sex: Male
  Weight: 93 kg

DRUGS (1)
  1. AFINITOR [Suspect]
     Indication: METASTATIC RENAL CELL CARCINOMA
     Dosage: 10 MG, PER DAY
     Route: 048
     Dates: start: 20110118, end: 20110203

REACTIONS (5)
  - DRUG INEFFECTIVE [None]
  - RENAL TUBULAR DISORDER [None]
  - RENAL FAILURE [None]
  - DECREASED APPETITE [None]
  - FATIGUE [None]
